FAERS Safety Report 8687725 (Version 8)
Quarter: 2013Q4

REPORT INFORMATION
  Report Type: Report from Study
  Country: AU (occurrence: AU)
  Receive Date: 20120727
  Receipt Date: 20131219
  Transmission Date: 20140711
  Serious: Yes (Life-Threatening, Other)
  Sender: FDA-Public Use
  Company Number: AU-PFIZER INC-2012158697

PATIENT
  Age: 41 Year
  Sex: Female
  Weight: 70.1 kg

DRUGS (8)
  1. VARENICLINE TARTRATE [Suspect]
     Indication: SMOKING CESSATION THERAPY
     Dosage: 0.5 MG, 1X/DAY
     Route: 048
     Dates: start: 20120203, end: 20120205
  2. VARENICLINE TARTRATE [Suspect]
     Dosage: 0.5 MG, 2X/DAY
     Route: 048
     Dates: start: 20120604, end: 20120613
  3. VARENICLINE TARTRATE [Suspect]
     Dosage: 0.5 MG (2 TABLETS) 2X/DAY
     Route: 048
     Dates: start: 20120614, end: 20120626
  4. XANAX [Suspect]
     Indication: INSOMNIA
     Dosage: 0.25 MG, AS NEEDED AT NIGHT
     Route: 048
     Dates: start: 20120529, end: 20120601
  5. LEXAPRO [Concomitant]
     Indication: DEPRESSION
     Dosage: 20 MG, 1X/DAY
     Route: 048
     Dates: start: 201101
  6. THYROXINE [Concomitant]
     Indication: HYPOTHYROIDISM
     Dosage: 50 UG, 1X/DAY
     Route: 048
     Dates: start: 201101
  7. DEPO PROVERA [Concomitant]
     Indication: CONTRACEPTION
     Dosage: UNK, EVERY 3 MONTHS
     Route: 030
     Dates: start: 201103
  8. VYTORIN [Concomitant]
     Indication: HYPERCHOLESTEROLAEMIA
     Dosage: EZETIMIBE10 MG /SIMVASTATIN 40 MG, ONCE DAILY
     Route: 048
     Dates: start: 2006

REACTIONS (2)
  - Suicidal ideation [Recovered/Resolved]
  - Intentional self-injury [Recovered/Resolved]
